FAERS Safety Report 9168796 (Version 1)
Quarter: 2013Q1

REPORT INFORMATION
  Report Type: Spontaneous
  Country: IT (occurrence: IT)
  Receive Date: 20130318
  Receipt Date: 20130318
  Transmission Date: 20140127
  Serious: Yes (Other)
  Sender: FDA-Public Use
  Company Number: IT-ROCHE-1202724

PATIENT
  Age: 67 Year
  Sex: Male

DRUGS (1)
  1. HERCEPTIN [Suspect]
     Indication: GASTRIC NEOPLASM
     Route: 042
     Dates: start: 20130218, end: 20130218

REACTIONS (3)
  - Blood pressure increased [Recovered/Resolved]
  - Dyskinesia [Recovered/Resolved]
  - Hot flush [Recovered/Resolved]
